FAERS Safety Report 22027170 (Version 1)
Quarter: 2023Q1

REPORT INFORMATION
  Report Type: Spontaneous
  Country: US (occurrence: US)
  Receive Date: 20230223
  Receipt Date: 20230223
  Transmission Date: 20230417
  Serious: No
  Sender: FDA-Public Use
  Company Number: US-BRISTOL-MYERS SQUIBB COMPANY-2023-024398

PATIENT
  Sex: Female

DRUGS (1)
  1. ZEPOSIA [Suspect]
     Active Substance: OZANIMOD HYDROCHLORIDE
     Indication: Multiple sclerosis
     Dosage: DOSE AND STRENGTH: 0.92
     Route: 048
     Dates: start: 2020

REACTIONS (6)
  - Multiple sclerosis relapse [Unknown]
  - Vision blurred [Unknown]
  - Pain in extremity [Unknown]
  - Stress [Unknown]
  - Aphasia [Unknown]
  - Hypoaesthesia [Unknown]
